FAERS Safety Report 5448237-7 (Version None)
Quarter: 2007Q3

REPORT INFORMATION
  Report Type: 
  Country: None (occurrence: None)
  Receive Date: 20070911
  Receipt Date: 20070904
  Transmission Date: 20080115
  Serious: Yes (Death, Hospitalization)
  Sender: FDA-Public Use
  Company Number: PHBS2007FR14570

PATIENT
  Age: 5 Year
  Sex: Male

DRUGS (8)
  1. CYCLOSPORINE [Suspect]
     Indication: RENAL TRANSPLANT
     Dosage: 5 MG/KG/D
     Route: 065
  2. CYCLOSPORINE [Suspect]
     Dosage: 7 MG/KG/D
     Route: 065
  3. MYCOPHENOLATE MOFETIL [Suspect]
     Dosage: 600 MG/M2
     Route: 065
  4. MYCOPHENOLATE MOFETIL [Suspect]
     Dosage: 400 MG/M2
     Route: 065
  5. ALG [Concomitant]
     Indication: RENAL TRANSPLANT
  6. METHYLPREDNISOLONE 16MG TAB [Concomitant]
     Indication: RENAL TRANSPLANT
     Dosage: 2 MG/KG/D
     Route: 065
  7. METHYLPREDNISOLONE 16MG TAB [Concomitant]
     Dosage: 0.35 MG/KG/D
     Route: 065
  8. PREDNISONE TAB [Suspect]
     Indication: RENAL TRANSPLANT
     Dosage: 0.35 MG/KG/D
     Route: 065

REACTIONS (14)
  - BRAIN MASS [None]
  - BRAIN STEM SYNDROME [None]
  - COMA [None]
  - CONVULSION [None]
  - EPSTEIN-BARR VIRUS INFECTION [None]
  - HEADACHE [None]
  - HEPATOMEGALY [None]
  - LYMPHADENOPATHY [None]
  - MASS EXCISION [None]
  - NODULE [None]
  - SMOOTH MUSCLE CELL NEOPLASM [None]
  - SPLENOMEGALY [None]
  - VIRAL LOAD INCREASED [None]
  - VITH NERVE PARALYSIS [None]
